FAERS Safety Report 9521706 (Version 2)
Quarter: 2013Q3

REPORT INFORMATION
  Report Type: Spontaneous
  Country: US (occurrence: US)
  Receive Date: 20130913
  Receipt Date: 20130913
  Transmission Date: 20140515
  Serious: Yes (Disabling, Other)
  Sender: FDA-Public Use
  Company Number: PHEH2013US018144

PATIENT
  Age: 45 Year
  Sex: Female
  Weight: 52 kg

DRUGS (10)
  1. RECLAST [Suspect]
     Indication: OSTEOPOROSIS
     Dosage: ANNUALLY
     Route: 042
     Dates: start: 20130812
  2. PRISTIQ [Concomitant]
     Indication: DEPRESSION
     Dosage: 50 MG, UNK
     Route: 048
  3. KLONOPIN [Concomitant]
     Indication: ANXIETY
     Dosage: 1 MG, AT BED TIME
     Route: 048
  4. TOPAMAX [Concomitant]
     Dosage: 100 MG, BID
  5. KADIAN [Concomitant]
     Indication: PAIN
     Dosage: 10 MG, QD
     Route: 048
  6. TRAZODONE [Concomitant]
     Indication: SLEEP DISORDER
     Dosage: 50 MG, HS
     Route: 048
  7. LORTAB [Concomitant]
     Indication: PAIN
     Dosage: 10/500 MG QD
     Route: 048
  8. PRILOSEC [Concomitant]
     Dosage: 20 MG, UNK
  9. SYNTHROID [Concomitant]
     Indication: HYPOTHYROIDISM
     Route: 048
  10. SOMA [Concomitant]
     Dosage: 350 MG, UNK

REACTIONS (28)
  - Gastrooesophageal reflux disease [Recovered/Resolved with Sequelae]
  - Decreased appetite [Recovered/Resolved with Sequelae]
  - Flatulence [Unknown]
  - Aphagia [Unknown]
  - Abdominal pain [Unknown]
  - Dyspepsia [Unknown]
  - Chest pain [Recovered/Resolved with Sequelae]
  - Myalgia [Recovered/Resolved with Sequelae]
  - Influenza like illness [Recovered/Resolved with Sequelae]
  - Arthralgia [Recovered/Resolved with Sequelae]
  - Nausea [Unknown]
  - Eructation [Unknown]
  - Dyspnoea [Unknown]
  - Chest discomfort [Unknown]
  - Restlessness [Unknown]
  - Palpitations [Unknown]
  - Pallor [Unknown]
  - Skin disorder [Unknown]
  - Constipation [Unknown]
  - Back pain [Unknown]
  - Muscle spasms [Unknown]
  - Pain in extremity [Unknown]
  - Dizziness [Unknown]
  - Vomiting [Unknown]
  - Hyperhidrosis [Unknown]
  - Fatigue [Unknown]
  - Musculoskeletal pain [Unknown]
  - Pyrexia [Unknown]
